FAERS Safety Report 6722337-3 (Version None)
Quarter: 2010Q2

REPORT INFORMATION
  Report Type: 
  Country: None (occurrence: None)
  Receive Date: 20100512
  Receipt Date: 20100504
  Transmission Date: 20101027
  Serious: Yes (Death)
  Sender: FDA-Public Use
  Company Number: GXKR2010US05019

PATIENT
  Age: 47 Year
  Sex: Female

DRUGS (9)
  1. BUPROPION (NGX) [Suspect]
     Route: 065
  2. FLUOXETINE [Suspect]
     Route: 065
  3. SERTRALINE HCL [Suspect]
     Route: 065
  4. TRAZODONE (NGX) [Suspect]
     Route: 065
  5. OXYMORPHONE [Suspect]
     Route: 065
  6. METHAMPHETAMINE HYDROCHLORIDE [Suspect]
     Route: 065
  7. TRIMETHOPRIM [Concomitant]
  8. CHLORPHENAMINE [Concomitant]
  9. ALCOHOL [Suspect]

REACTIONS (4)
  - ACCIDENTAL DEATH [None]
  - DRUG TOXICITY [None]
  - HEPATIC CIRRHOSIS [None]
  - PULMONARY CONGESTION [None]
